FAERS Safety Report 9210207 (Version 3)
Quarter: 2013Q2

REPORT INFORMATION
  Report Type: Spontaneous
  Country: US (occurrence: US)
  Receive Date: 20130404
  Receipt Date: 20130503
  Transmission Date: 20140414
  Serious: Yes (Other)
  Sender: FDA-Public Use
  Company Number: US-UCBSA-081923

PATIENT
  Age: 59 Year
  Sex: Female
  Weight: 81 kg

DRUGS (6)
  1. CIMZIA [Suspect]
     Indication: RHEUMATOID ARTHRITIS
     Route: 058
     Dates: start: 20130228
  2. SYNTHROID [Concomitant]
     Indication: THYROID DISORDER
  3. ESTRADIOL [Concomitant]
     Indication: MENOPAUSE
  4. METOPROLOL ER [Concomitant]
     Indication: HYPERTENSION
     Dates: start: 2012
  5. LOSARTAN/HTZ [Concomitant]
     Indication: HYPERTENSION
     Dates: start: 2012
  6. HYDROXYCHLOR [Concomitant]
     Indication: ARTHRITIS
     Dates: start: 2012

REACTIONS (8)
  - Psoriasis [Recovering/Resolving]
  - Systemic lupus erythematosus [Unknown]
  - Dermatomyositis [Unknown]
  - Lip disorder [Unknown]
  - Swelling [Not Recovered/Not Resolved]
  - Oedema mouth [Unknown]
  - Ear swelling [Unknown]
  - Otorrhoea [Unknown]
